FAERS Safety Report 11663738 (Version 1)
Quarter: 2015Q4

REPORT INFORMATION
  Report Type: Report from Study
  Country: US (occurrence: US)
  Receive Date: 20151027
  Receipt Date: 20151027
  Transmission Date: 20160304
  Serious: No
  Sender: FDA-Public Use
  Company Number: US-TEVA-602931USA

PATIENT
  Sex: Female

DRUGS (3)
  1. COPAXONE [Suspect]
     Active Substance: GLATIRAMER ACETATE
     Indication: MULTIPLE SCLEROSIS
     Dosage: UNKNOWN FORM STRENGTH
     Route: 058
  2. AMPYRA [Suspect]
     Active Substance: DALFAMPRIDINE
     Route: 065
  3. SEPTRA [Suspect]
     Active Substance: SULFAMETHOXAZOLE\TRIMETHOPRIM
     Indication: URINARY TRACT INFECTION
     Route: 065

REACTIONS (4)
  - Pruritus [Unknown]
  - Injury associated with device [Unknown]
  - Rash [Unknown]
  - Urinary tract infection [Unknown]

NARRATIVE: CASE EVENT DATE: 2014
